FAERS Safety Report 9993384 (Version 1)
Quarter: 2014Q1

REPORT INFORMATION
  Report Type: Spontaneous
  Country: AU (occurrence: AU)
  Receive Date: 20140310
  Receipt Date: 20140310
  Transmission Date: 20141002
  Serious: Yes (Hospitalization)
  Sender: FDA-Public Use
  Company Number: AU-ABBVIE-14P-008-1210825-00

PATIENT
  Age: 77 Year
  Sex: Female

DRUGS (4)
  1. CREON [Suspect]
     Indication: PRODUCT USED FOR UNKNOWN INDICATION
     Dosage: 25,000 UNITS WITH MEALS
     Dates: start: 2012
  2. CREON [Suspect]
     Dosage: 25,000 WITH MEALS AND 10,000 WITH SNACKS
  3. CREON [Suspect]
     Dosage: 25,000 WITH MEALS
     Dates: start: 2013
  4. CREON [Suspect]
     Dosage: 10,000 WITH MEALS

REACTIONS (4)
  - Pulmonary oedema [Unknown]
  - Diarrhoea [Recovering/Resolving]
  - Weight decreased [Unknown]
  - Rash [Unknown]
